FAERS Safety Report 16342702 (Version 7)
Quarter: 2019Q4

REPORT INFORMATION
  Report Type: Spontaneous
  Country: JP (occurrence: JP)
  Receive Date: 20190522
  Receipt Date: 20191227
  Transmission Date: 20200122
  Serious: Yes (Death, Hospitalization, Other)
  Sender: FDA-Public Use
  Company Number: JP-GILEAD-2019-0408200

PATIENT
  Age: 70 Year
  Sex: Male
  Weight: 82.4 kg

DRUGS (2)
  1. EPCLUSA [Suspect]
     Active Substance: SOFOSBUVIR\VELPATASVIR
     Indication: HEPATIC CIRRHOSIS
  2. EPCLUSA [Suspect]
     Active Substance: SOFOSBUVIR\VELPATASVIR
     Indication: HEPATITIS C
     Dosage: 1 DOSAGE FORM, QD
     Route: 048
     Dates: start: 20190404, end: 20190613

REACTIONS (4)
  - Hepatic failure [Fatal]
  - Hepatocellular carcinoma [Not Recovered/Not Resolved]
  - Ascites [Not Recovered/Not Resolved]
  - Liver carcinoma ruptured [Not Recovered/Not Resolved]

NARRATIVE: CASE EVENT DATE: 20190501
